FAERS Safety Report 8992890 (Version 1)
Quarter: 2013Q1

REPORT INFORMATION
  Report Type: Spontaneous
  Country: SE (occurrence: SE)
  Receive Date: 20130102
  Receipt Date: 20130102
  Transmission Date: 20140127
  Serious: Yes (Hospitalization)
  Sender: FDA-Public Use
  Company Number: SE-JNJFOC-20121207916

PATIENT
  Age: 39 Year
  Sex: Female

DRUGS (10)
  1. XEPLION [Suspect]
     Indication: PSYCHOTIC DISORDER
     Route: 030
     Dates: start: 20120307, end: 20120320
  2. XEPLION [Suspect]
     Indication: PSYCHOTIC DISORDER
     Dosage: 75 MG AS A MAINTENANCE DOSE IN EARLY MARCH.
     Route: 030
     Dates: start: 201203
  3. XEPLION [Suspect]
     Indication: PSYCHOTIC DISORDER
     Dosage: XEPLION 50 MG LOADING DOSE 150 MG IN 02-FEB-2012, LOADING DOSE 100 MG AFTER ONE WEEK
     Route: 030
     Dates: start: 201202
  4. XEPLION [Suspect]
     Indication: PSYCHOTIC DISORDER
     Dosage: XEPLION  50 MG LOADING DOSE 150 MG
     Route: 030
     Dates: start: 20120202
  5. XEPLION [Suspect]
     Indication: DELUSIONAL DISORDER, UNSPECIFIED TYPE
     Dosage: XEPLION 50 MG LOADING DOSE 150 MG IN 02-FEB-2012, LOADING DOSE 100 MG AFTER ONE WEEK
     Route: 030
     Dates: start: 201202
  6. XEPLION [Suspect]
     Indication: DELUSIONAL DISORDER, UNSPECIFIED TYPE
     Dosage: XEPLION  50 MG LOADING DOSE 150 MG
     Route: 030
     Dates: start: 20120202
  7. XEPLION [Suspect]
     Indication: DELUSIONAL DISORDER, UNSPECIFIED TYPE
     Route: 030
     Dates: start: 20120307, end: 20120320
  8. XEPLION [Suspect]
     Indication: DELUSIONAL DISORDER, UNSPECIFIED TYPE
     Dosage: 75 MG AS A MAINTENANCE DOSE IN EARLY MARCH.
     Route: 030
     Dates: start: 201203
  9. RISPERIDONE [Suspect]
     Indication: PSYCHOTIC DISORDER
     Dosage: IN EVENING
     Route: 048
     Dates: start: 20120127
  10. RISPERIDONE [Suspect]
     Indication: DELUSIONAL DISORDER, UNSPECIFIED TYPE
     Dosage: IN EVENING
     Route: 048
     Dates: start: 20120127

REACTIONS (8)
  - Blunted affect [Unknown]
  - Galactorrhoea [Unknown]
  - Menstrual disorder [Unknown]
  - Arthralgia [Unknown]
  - Joint swelling [Unknown]
  - Pain in extremity [Unknown]
  - Pain in extremity [Unknown]
  - Dissociation [Unknown]
